FAERS Safety Report 5470158-4 (Version None)
Quarter: 2007Q3

REPORT INFORMATION
  Report Type: 
  Country: None (occurrence: None)
  Receive Date: 20070927
  Receipt Date: 20070917
  Transmission Date: 20080115
  Serious: Yes (Other)
  Sender: FDA-Public Use
  Company Number: US-PFIZER INC-2007077798

PATIENT
  Sex: Female
  Weight: 63.5 kg

DRUGS (31)
  1. LYRICA [Suspect]
     Indication: DIABETIC NEUROPATHY
  2. OSCAL [Concomitant]
  3. OSCAL [Concomitant]
  4. K-TAB [Concomitant]
  5. K-TAB [Concomitant]
  6. ULTRAM [Concomitant]
  7. ULTRAM [Concomitant]
  8. ALLOPURINOL [Concomitant]
  9. ALLOPURINOL [Concomitant]
  10. COLCHICINE [Concomitant]
  11. COLCHICINE [Concomitant]
  12. LIPITOR [Concomitant]
  13. LIPITOR [Concomitant]
  14. CARDIZEM [Concomitant]
  15. CARDIZEM [Concomitant]
  16. IMDUR [Concomitant]
  17. IMDUR [Concomitant]
  18. ATACAND [Concomitant]
  19. ATACAND [Concomitant]
  20. CLARITIN [Concomitant]
  21. CLARITIN [Concomitant]
  22. NEXIUM [Concomitant]
  23. NEXIUM [Concomitant]
  24. CLINORIL [Concomitant]
  25. CLINORIL [Concomitant]
  26. BACLOFEN [Concomitant]
  27. BACLOFEN [Concomitant]
  28. FOSAMAX [Concomitant]
  29. FOSAMAX [Concomitant]
  30. INSULIN [Concomitant]
  31. INSULIN [Concomitant]

REACTIONS (4)
  - CONVULSION [None]
  - DRUG INEFFECTIVE [None]
  - FEELING ABNORMAL [None]
  - PAIN [None]
